FAERS Safety Report 5303042-7 (Version None)
Quarter: 2007Q2

REPORT INFORMATION
  Report Type: 
  Country: None (occurrence: None)
  Receive Date: 20070413
  Receipt Date: 20070326
  Transmission Date: 20071010
  Serious: Yes (Other)
  Sender: FDA-Public Use
  Company Number: 20070066

PATIENT
  Age: 75 Year
  Sex: Female
  Weight: 90.7194 kg

DRUGS (1)
  1. METHYLENE BLUE INJECTION, USP (0310-10) [Suspect]
     Indication: BREAST CANCER
     Dosage: INTRADERMAL
     Route: 062
     Dates: start: 20060816

REACTIONS (1)
  - SKIN DISCOLOURATION [None]
